FAERS Safety Report 6008038-8 (Version None)
Quarter: 2008Q4

REPORT INFORMATION
  Report Type: 
  Country: None (occurrence: None)
  Receive Date: 20081217
  Receipt Date: 20080805
  Transmission Date: 20090506
  Serious: No
  Sender: FDA-Public Use
  Company Number: US-ASTRAZENECA-2008UW15945

PATIENT
  Age: 48 Year
  Sex: Male

DRUGS (3)
  1. CRESTOR [Suspect]
     Indication: BLOOD CHOLESTEROL INCREASED
     Route: 048
  2. LOVESA [Concomitant]
  3. DIOVAN [Concomitant]

REACTIONS (3)
  - FATIGUE [None]
  - MOBILITY DECREASED [None]
  - MUSCULAR WEAKNESS [None]
